FAERS Safety Report 7947227-X (Version None)
Quarter: 2011Q4

REPORT INFORMATION
  Report Type: 
  Country: None (occurrence: None)
  Receive Date: 20111129
  Receipt Date: 20111115
  Transmission Date: 20120403
  Serious: Yes (Hospitalization)
  Sender: FDA-Public Use
  Company Number: US-ASTRAZENECA-2011SE46802

PATIENT
  Age: 64 Year
  Sex: Female

DRUGS (2)
  1. SYMBICORT [Suspect]
     Route: 055
  2. VITAMIN TAB [Concomitant]

REACTIONS (6)
  - SHOCK [None]
  - CHRONIC OBSTRUCTIVE PULMONARY DISEASE [None]
  - ANAEMIA [None]
  - MENTAL IMPAIRMENT [None]
  - MALAISE [None]
  - FATIGUE [None]
